FAERS Safety Report 18648987 (Version 1)
Quarter: 2020Q4

REPORT INFORMATION
  Report Type: Spontaneous
  Country: FR (occurrence: FR)
  Receive Date: 20201222
  Receipt Date: 20201222
  Transmission Date: 20210114
  Serious: Yes (Hospitalization)
  Sender: FDA-Public Use
  Company Number: FR-MYLANLABS-2020M1103349

PATIENT
  Age: 3 Year
  Sex: Male
  Weight: 10 kg

DRUGS (4)
  1. EMLA [Concomitant]
     Active Substance: LIDOCAINE\PRILOCAINE
     Dosage: UNK
     Route: 062
  2. MIDAZOLAM MYLAN [Suspect]
     Active Substance: MIDAZOLAM HYDROCHLORIDE
     Indication: SEDATION
     Dosage: DOSE UNIQUE
     Route: 054
     Dates: start: 20201124, end: 20201124
  3. ORAMORPH [Concomitant]
     Active Substance: MORPHINE SULFATE
     Dosage: 0.99 MILLILITER, TOTAL
     Route: 048
  4. DOLIPRANE [Concomitant]
     Active Substance: ACETAMINOPHEN
     Dosage: 147 MILLIGRAM, TOTAL
     Route: 048

REACTIONS (3)
  - Somnolence [Recovered/Resolved]
  - Product preparation error [Recovered/Resolved]
  - Overdose [Recovered/Resolved]

NARRATIVE: CASE EVENT DATE: 20201124
